FAERS Safety Report 19482844 (Version 1)
Quarter: 2021Q3

REPORT INFORMATION
  Report Type: Spontaneous
  Country: US (occurrence: US)
  Receive Date: 20210701
  Receipt Date: 20210701
  Transmission Date: 20211014
  Serious: No
  Sender: FDA-Public Use
  Company Number: US-DRREDDYS-SPO/USA/21/0136979

PATIENT
  Age: 62 Year
  Sex: Female
  Weight: 58.05 kg

DRUGS (2)
  1. FEXOFENADINE HCL [Suspect]
     Active Substance: FEXOFENADINE HYDROCHLORIDE
     Indication: ECZEMA
     Dosage: 1?2 TABLETS A DAY
     Dates: start: 202103
  2. FEXOFENADINE HCL [Suspect]
     Active Substance: FEXOFENADINE HYDROCHLORIDE
     Indication: URTICARIA

REACTIONS (5)
  - Taste disorder [Unknown]
  - Lip swelling [Unknown]
  - Product use in unapproved indication [Unknown]
  - Dry mouth [Unknown]
  - Overdose [Unknown]
